FAERS Safety Report 25726383 (Version 1)
Quarter: 2025Q3

REPORT INFORMATION
  Report Type: Spontaneous
  Country: US (occurrence: None)
  Receive Date: 20250825
  Receipt Date: 20250825
  Transmission Date: 20251021
  Serious: Yes (Hospitalization)
  Sender: FDA-CTU
  Company Number: None

PATIENT
  Sex: Female

DRUGS (5)
  1. WINREVAIR [Suspect]
     Active Substance: SOTATERCEPT-CSRK
     Indication: Pulmonary arterial hypertension
     Dosage: OTHER FREQUENCY : EVERY 3 WEEKS;?
     Route: 058
     Dates: start: 20250429
  2. AMBRISENTAN [Concomitant]
     Active Substance: AMBRISENTAN
  3. STERILE DILUENT FOR REMODULIN [Concomitant]
     Active Substance: WATER
  4. TADALAFIL [Concomitant]
     Active Substance: TADALAFIL
  5. WINREVAIR [Concomitant]
     Active Substance: SOTATERCEPT-CSRK

REACTIONS (2)
  - Dyspnoea [None]
  - Upper respiratory tract congestion [None]
